FAERS Safety Report 5230377-9 (Version None)
Quarter: 2007Q1

REPORT INFORMATION
  Report Type: 
  Country: None (occurrence: None)
  Receive Date: 20070206
  Receipt Date: 20070124
  Transmission Date: 20070707
  Serious: Yes (Life-Threatening)
  Sender: FDA-Public Use
  Company Number: SK-PFIZER INC-2007008246

PATIENT
  Age: 32 Year
  Sex: Female

DRUGS (2)
  1. DALACIN [Suspect]
     Dosage: DAILY DOSE:300MG
     Route: 048
  2. IMUDON [Concomitant]

REACTIONS (3)
  - DYSPNOEA [None]
  - FACE OEDEMA [None]
  - RASH GENERALISED [None]
